FAERS Safety Report 15839633 (Version 1)
Quarter: 2019Q1

REPORT INFORMATION
  Report Type: Spontaneous
  Country: TR (occurrence: TR)
  Receive Date: 20190117
  Receipt Date: 20190117
  Transmission Date: 20190417
  Serious: Yes (Other)
  Sender: FDA-Public Use
  Company Number: PHHY2019TR002804

PATIENT
  Age: 30 Year
  Sex: Male

DRUGS (2)
  1. ADALIMUMAB [Suspect]
     Active Substance: ADALIMUMAB
     Indication: POLYARTERITIS NODOSA
     Route: 065
  2. ADALIMUMAB [Suspect]
     Active Substance: ADALIMUMAB
     Indication: COMBINED IMMUNODEFICIENCY

REACTIONS (10)
  - Abdominal pain [Unknown]
  - Aneurysm [Unknown]
  - Peptic ulcer haemorrhage [Unknown]
  - Myalgia [Unknown]
  - Lymphopenia [Unknown]
  - Arthritis [Unknown]
  - Livedo reticularis [Unknown]
  - Polyneuropathy [Unknown]
  - Leukopenia [Unknown]
  - Product use in unapproved indication [Unknown]
